FAERS Safety Report 24933852 (Version 1)
Quarter: 2025Q1

REPORT INFORMATION
  Report Type: Report from Study
  Country: US (occurrence: US)
  Receive Date: 20250206
  Receipt Date: 20250206
  Transmission Date: 20250408
  Serious: Yes (Other)
  Sender: EXELIXIS
  Company Number: US-EXELIXIS-CABO-24075214

PATIENT
  Sex: Male

DRUGS (11)
  1. CABOMETYX [Suspect]
     Active Substance: CABOZANTINIB S-MALATE
     Indication: Carcinoid tumour pulmonary
     Dosage: 40 MG, QD
     Dates: start: 202401, end: 20240505
  2. CABOMETYX [Suspect]
     Active Substance: CABOZANTINIB S-MALATE
     Dosage: 40 MG, QD
  3. HYDROCHLOROTHIAZIDE\LOSARTAN [Concomitant]
     Active Substance: HYDROCHLOROTHIAZIDE\LOSARTAN
  4. ISOSORBIDE [Concomitant]
     Active Substance: ISOSORBIDE
  5. PLAVIX [Concomitant]
     Active Substance: CLOPIDOGREL BISULFATE
  6. ASPIRIN [Concomitant]
     Active Substance: ASPIRIN
  7. LOVASTATIN [Concomitant]
     Active Substance: LOVASTATIN
  8. GEMFIBROZIL [Concomitant]
     Active Substance: GEMFIBROZIL
  9. METOPROLOL [Concomitant]
     Active Substance: METOPROLOL
  10. UREA [Concomitant]
     Active Substance: UREA
  11. HYDRALAZINE [Concomitant]
     Active Substance: HYDRALAZINE HYDROCHLORIDE

REACTIONS (13)
  - Blood pressure increased [Recovering/Resolving]
  - Hepatic neoplasm [Recovering/Resolving]
  - Hepatic embolisation [Unknown]
  - Epistaxis [Recovered/Resolved]
  - Gastrointestinal motility disorder [Recovered/Resolved]
  - Rash [Recovered/Resolved]
  - Nausea [Not Recovered/Not Resolved]
  - Decreased appetite [Not Recovered/Not Resolved]
  - Dysgeusia [Recovered/Resolved]
  - Fatigue [Not Recovered/Not Resolved]
  - Weight decreased [Unknown]
  - Dizziness [Unknown]
  - Off label use [Unknown]
